FAERS Safety Report 7839853-3 (Version None)
Quarter: 2011Q4

REPORT INFORMATION
  Report Type: 
  Country: None (occurrence: None)
  Receive Date: 20111025
  Receipt Date: 20111014
  Transmission Date: 20120403
  Serious: Yes (Other)
  Sender: FDA-Public Use
  Company Number: US-BIOGENIDEC-2011BI027958

PATIENT
  Age: 34 Year
  Sex: Female

DRUGS (5)
  1. TYSABRI [Suspect]
     Indication: MULTIPLE SCLEROSIS
     Route: 042
     Dates: start: 20080211, end: 20110411
  2. MULTI-VITAMINS [Concomitant]
  3. ZOLOFT [Concomitant]
     Dates: start: 20111003
  4. METFORMIN HCL [Concomitant]
     Indication: POLYCYSTIC OVARIES
  5. SYNTHROID [Concomitant]

REACTIONS (2)
  - PREGNANCY [None]
  - GESTATIONAL DIABETES [None]
